FAERS Safety Report 16167135 (Version 1)
Quarter: 2019Q2

REPORT INFORMATION
  Report Type: Spontaneous
  Country: US (occurrence: US)
  Receive Date: 20190408
  Receipt Date: 20190408
  Transmission Date: 20190711
  Serious: No
  Sender: FDA-Public Use
  Company Number: US-GLAXOSMITHKLINE-US2019061634

PATIENT
  Age: 35 Year
  Sex: Female

DRUGS (1)
  1. NICORETTE [Suspect]
     Active Substance: NICOTINE
     Indication: SMOKING CESSATION THERAPY
     Dosage: 1 MG, EVERY HOUR
     Route: 048

REACTIONS (5)
  - Urinary incontinence [Unknown]
  - Contraindicated product administered [Unknown]
  - Intentional overdose [Unknown]
  - Insomnia [Unknown]
  - Nicotine dependence [Unknown]
